FAERS Safety Report 25615724 (Version 1)
Quarter: 2025Q3

REPORT INFORMATION
  Report Type: Spontaneous
  Country: US (occurrence: US)
  Receive Date: 20250729
  Receipt Date: 20250729
  Transmission Date: 20251021
  Serious: Yes (Other)
  Sender: ACCORD
  Company Number: US-MLMSERVICE-20250711-PI574244-00218-1

PATIENT
  Age: 61 Year
  Sex: Male

DRUGS (2)
  1. METHOTREXATE [Suspect]
     Active Substance: METHOTREXATE
     Indication: Pulmonary sarcoidosis
  2. PREDNISONE [Concomitant]
     Active Substance: PREDNISONE
     Indication: Polymyositis

REACTIONS (2)
  - Hepatic cirrhosis [Unknown]
  - Off label use [Unknown]
